FAERS Safety Report 10463363 (Version 1)
Quarter: 2014Q3

REPORT INFORMATION
  Report Type: Spontaneous
  Country: US (occurrence: None)
  Receive Date: 20140918
  Receipt Date: 20140918
  Transmission Date: 20150326
  Serious: Yes (Death)
  Sender: FDA-Public Use
  Company Number: None

PATIENT
  Age: 91 Year
  Sex: Male
  Weight: 70.76 kg

DRUGS (3)
  1. OCUVITE [Concomitant]
     Active Substance: VITAMINS
  2. ENALAPRIL MALEATE/AVODART [Concomitant]
  3. RAPAFLO [Suspect]
     Active Substance: SILODOSIN
     Indication: PROSTATOMEGALY
     Dosage: 8 MG PER CAPSULE 1 CAPSULE ONCE A DAY AT NIGHT WITH MEAL
     Route: 048
     Dates: start: 20140711, end: 20140712

REACTIONS (5)
  - Dysphagia [None]
  - Fatigue [None]
  - Decreased appetite [None]
  - Choking [None]
  - Loss of consciousness [None]

NARRATIVE: CASE EVENT DATE: 20140712
